FAERS Safety Report 7917231-6 (Version None)
Quarter: 2011Q4

REPORT INFORMATION
  Report Type: 
  Country: None (occurrence: None)
  Receive Date: 20111116
  Receipt Date: 20111103
  Transmission Date: 20120403
  Serious: Yes (Hospitalization)
  Sender: FDA-Public Use
  Company Number: PHHY2011FR96863

PATIENT
  Sex: Female

DRUGS (8)
  1. MYCOPHENOLATE MOFETIL (CELLCEPT) [Concomitant]
     Dosage: 250 MG, BID
     Route: 048
     Dates: start: 19660101
  2. FERROUS SULFATE TAB [Concomitant]
  3. PREDNISONE [Concomitant]
     Dosage: 0.5 MG / KG / DAY
  4. PANTOPRAZOLE SODIUM [Concomitant]
     Dosage: 20 MG, DAILY
  5. PROGRAF [Concomitant]
     Dosage: 2 MG, BID
     Dates: start: 19660101, end: 20110601
  6. CERTICAN [Suspect]
     Dosage: 1.5 MG, BID
     Route: 048
     Dates: start: 20110601, end: 20111021
  7. PREDNISONE [Concomitant]
     Dosage: 25 MG, DAILY
  8. ACETAMINOPHEN [Concomitant]

REACTIONS (9)
  - COUGH [None]
  - BLOOD CREATININE INCREASED [None]
  - PO2 DECREASED [None]
  - EOSINOPHILIA [None]
  - INTERSTITIAL LUNG DISEASE [None]
  - DYSPNOEA [None]
  - LYMPHOCYTOSIS [None]
  - BLOOD UREA INCREASED [None]
  - PYREXIA [None]
